FAERS Safety Report 8291963-5 (Version None)
Quarter: 2012Q2

REPORT INFORMATION
  Report Type: 
  Country: None (occurrence: None)
  Receive Date: 20120417
  Receipt Date: 20110824
  Transmission Date: 20120825
  Serious: No
  Sender: FDA-Public Use
  Company Number: US-ASTRAZENECA-2011SE51198

PATIENT
  Sex: Female

DRUGS (9)
  1. RANITIDINE [Concomitant]
  2. NEXIUM [Suspect]
     Indication: HIATUS HERNIA
     Route: 048
  3. ORAL PEPCID SOLUTION [Concomitant]
  4. PREVACID [Concomitant]
  5. PRILOSEC [Suspect]
     Route: 048
  6. PANTOPRAZOLE [Concomitant]
  7. NEXIUM [Suspect]
     Indication: BARRETT'S OESOPHAGUS
     Route: 048
  8. PREVPAC [Concomitant]
  9. PROTONIX [Concomitant]

REACTIONS (2)
  - DRUG INEFFECTIVE [None]
  - OFF LABEL USE [None]
